FAERS Safety Report 16919311 (Version 1)
Quarter: 2019Q4

REPORT INFORMATION
  Report Type: Spontaneous
  Country: US (occurrence: US)
  Receive Date: 20191015
  Receipt Date: 20191015
  Transmission Date: 20200122
  Serious: Yes (Hospitalization, Other)
  Sender: FDA-Public Use
  Company Number: US-MYLANLABS-2019M1097437

PATIENT
  Age: 89 Year
  Sex: Female

DRUGS (4)
  1. CARDIZEM [Suspect]
     Active Substance: DILTIAZEM HYDROCHLORIDE
     Indication: HYPERTENSION
     Route: 065
  2. LISINOPRIL. [Suspect]
     Active Substance: LISINOPRIL
     Indication: HYPERTENSION
     Dosage: 10 MILLIGRAM, QD
     Route: 065
  3. LISINOPRIL. [Suspect]
     Active Substance: LISINOPRIL
     Indication: CARDIAC FAILURE CONGESTIVE
  4. SOTALOL. [Suspect]
     Active Substance: SOTALOL
     Indication: ATRIAL FIBRILLATION
     Dosage: 40 MILLIGRAM, QD
     Route: 065

REACTIONS (5)
  - Shock [Recovering/Resolving]
  - Renal failure [Recovering/Resolving]
  - Hyperkalaemia [Recovering/Resolving]
  - Bradycardia [Recovering/Resolving]
  - Atrioventricular block [Recovering/Resolving]
